FAERS Safety Report 19962789 (Version 1)
Quarter: 2021Q4

REPORT INFORMATION
  Report Type: Spontaneous
  Country: AU (occurrence: AU)
  Receive Date: 20211018
  Receipt Date: 20211018
  Transmission Date: 20220304
  Serious: Yes (Other)
  Sender: FDA-Public Use
  Company Number: AU-PFIZER INC-202101311697

PATIENT
  Age: 67 Year
  Sex: Male

DRUGS (2)
  1. CAVERJECT IMPULSE [Suspect]
     Active Substance: ALPROSTADIL
     Indication: Pain
     Dosage: UNK
  2. CAVERJECT IMPULSE [Suspect]
     Active Substance: ALPROSTADIL
     Indication: Discomfort

REACTIONS (3)
  - Prostate cancer [Unknown]
  - Penile curvature [Unknown]
  - Off label use [Unknown]
